FAERS Safety Report 8843439 (Version 2)
Quarter: 2015Q3

REPORT INFORMATION
  Report Type: Report from Study
  Country: US (occurrence: US)
  Receive Date: 20121016
  Receipt Date: 20150820
  Transmission Date: 20151125
  Serious: Yes (Hospitalization, Other)
  Sender: FDA-Public Use
  Company Number: US-ROCHE-1120144

PATIENT
  Sex: Female
  Weight: 117 kg

DRUGS (3)
  1. PREMARIN [Concomitant]
     Active Substance: ESTROGENS, CONJUGATED
  2. NUTROPIN AQ [Suspect]
     Active Substance: SOMATROPIN
     Indication: GROWTH HORMONE DEFICIENCY
  3. NUTROPIN AQ [Suspect]
     Active Substance: SOMATROPIN
     Indication: DWARFISM
     Route: 058

REACTIONS (9)
  - Rotator cuff repair [Unknown]
  - Osteomalacia [Unknown]
  - Insomnia [Unknown]
  - Hypercalciuria [Unknown]
  - Pain in extremity [Unknown]
  - Peripheral swelling [Unknown]
  - Asthenia [Unknown]
  - Fatigue [Unknown]
  - Compression fracture [Unknown]
